FAERS Safety Report 6232295-6 (Version None)
Quarter: 2009Q2

REPORT INFORMATION
  Report Type: 
  Country: None (occurrence: None)
  Receive Date: 20090617
  Receipt Date: 20090609
  Transmission Date: 20091009
  Serious: No
  Sender: FDA-Public Use
  Company Number: US-JNJFOC-20090603537

PATIENT
  Sex: Female
  Weight: 65.77 kg

DRUGS (11)
  1. FENTANYL TRANSDERMAL SYSTEM [Suspect]
     Indication: PAIN
     Route: 062
  2. DETROL [Concomitant]
     Indication: BLADDER DISORDER
  3. PLAVIX [Concomitant]
     Route: 048
  4. LIPITOR [Concomitant]
     Indication: BLOOD CHOLESTEROL INCREASED
     Route: 048
  5. LYRICA [Concomitant]
     Indication: PAIN
     Route: 048
  6. FORTEO [Concomitant]
     Indication: BONE DISORDER
     Route: 058
  7. FOLIC ACID [Concomitant]
     Route: 048
  8. SYNTHROID [Concomitant]
     Indication: THYROID DISORDER
     Route: 048
  9. LOTREL [Concomitant]
     Indication: HYPERTENSION
     Route: 048
  10. HYDROCODONE BITARTRATE [Concomitant]
     Indication: PAIN
     Dosage: AS NEEDED
     Route: 048
  11. METHOTREXATE [Concomitant]
     Indication: ARTHRITIS
     Route: 048

REACTIONS (2)
  - DRUG DOSE OMISSION [None]
  - INAPPROPRIATE SCHEDULE OF DRUG ADMINISTRATION [None]
